FAERS Safety Report 6187996-5 (Version None)
Quarter: 2009Q2

REPORT INFORMATION
  Report Type: 
  Country: None (occurrence: None)
  Receive Date: 20090511
  Receipt Date: 20090511
  Transmission Date: 20091009
  Serious: Yes (Hospitalization)
  Sender: FDA-Public Use
  Company Number: None

PATIENT
  Age: 47 Year
  Sex: Male
  Weight: 121.8 kg

DRUGS (2)
  1. SUNITINIB 25 MG SU011248 [Suspect]
     Indication: GLIOBLASTOMA
     Dosage: 25MG  28 DAYS Q 42 DAYS PO
     Route: 048
     Dates: start: 20090406, end: 20090503
  2. SUNITINIB 12.5MG SU011248 [Suspect]
     Indication: GLIOBLASTOMA
     Dosage: 12.5MG  28 DAYS Q 42 DAYS PO
     Route: 048

REACTIONS (6)
  - ABSCESS [None]
  - ARTHRALGIA [None]
  - DISORIENTATION [None]
  - PAIN [None]
  - RASH [None]
  - TACHYCARDIA [None]
